FAERS Safety Report 17027976 (Version 5)
Quarter: 2019Q4

REPORT INFORMATION
  Report Type: Report from Study
  Country: US (occurrence: US)
  Receive Date: 20191113
  Receipt Date: 20191231
  Transmission Date: 20200122
  Serious: Yes (Other)
  Sender: FDA-Public Use
  Company Number: NVSC2019US033674

PATIENT
  Sex: Female

DRUGS (1)
  1. EXJADE [Suspect]
     Active Substance: DEFERASIROX
     Indication: PRODUCT USED FOR UNKNOWN INDICATION
     Route: 065

REACTIONS (4)
  - Osteogenesis imperfecta [Unknown]
  - Osteoporosis [Unknown]
  - Gait inability [Unknown]
  - Lower limb fracture [Unknown]
